FAERS Safety Report 9089923 (Version 1)
Quarter: 2013Q1

REPORT INFORMATION
  Report Type: Spontaneous
  Country: GB (occurrence: GB)
  Receive Date: 20130218
  Receipt Date: 20130218
  Transmission Date: 20140127
  Serious: Yes (Other)
  Sender: FDA-Public Use
  Company Number: GB-009507513-1302GBR005615

PATIENT
  Age: 28 Year
  Sex: Female
  Weight: 94 kg

DRUGS (1)
  1. NEXPLANON [Suspect]
     Indication: CONTRACEPTION
     Dosage: 68 MG, UNK
     Route: 059

REACTIONS (2)
  - Complication of device insertion [Unknown]
  - Product quality issue [Unknown]
